FAERS Safety Report 9418615 (Version 2)
Quarter: 2013Q3

REPORT INFORMATION
  Report Type: Spontaneous
  Country: US (occurrence: US)
  Receive Date: 20130725
  Receipt Date: 20130902
  Transmission Date: 20140515
  Serious: Yes (Other)
  Sender: FDA-Public Use
  Company Number: US-JNJFOC-20130618054

PATIENT
  Age: 64 Year
  Sex: Female

DRUGS (17)
  1. MOTRIN IB [Suspect]
     Route: 065
  2. MOTRIN IB [Suspect]
     Indication: PAIN MANAGEMENT
     Route: 065
  3. ASPIRIN [Suspect]
     Indication: PRODUCT USED FOR UNKNOWN INDICATION
     Route: 065
  4. ALEVE [Suspect]
     Indication: SPINAL PAIN
     Route: 065
  5. ALEVE [Suspect]
     Indication: SPINAL PAIN
     Route: 065
  6. ALEVE [Suspect]
     Indication: SPINAL PAIN
     Route: 065
     Dates: start: 2004
  7. ALEVE [Suspect]
     Indication: ARTHRALGIA
     Route: 065
  8. ALEVE [Suspect]
     Indication: ARTHRALGIA
     Route: 065
  9. ALEVE [Suspect]
     Indication: ARTHRALGIA
     Route: 065
     Dates: start: 2004
  10. ALEVE [Suspect]
     Indication: ARTHRITIS
     Route: 065
  11. ALEVE [Suspect]
     Indication: ARTHRITIS
     Route: 065
     Dates: start: 2004
  12. ALEVE [Suspect]
     Indication: ARTHRITIS
     Route: 065
  13. CELEBREX [Suspect]
     Indication: PRODUCT USED FOR UNKNOWN INDICATION
     Route: 065
  14. NEURONTIN [Suspect]
     Indication: OSTEOARTHRITIS
     Route: 065
  15. NAPROXEN [Suspect]
     Indication: PAIN MANAGEMENT
     Route: 065
  16. VICODIN [Concomitant]
     Indication: PAIN MANAGEMENT
     Dosage: 5/325 MG 4 TIMES DAILY
     Route: 065
     Dates: start: 2006
  17. TYLENOL [Concomitant]
     Indication: PAIN MANAGEMENT
     Route: 065

REACTIONS (7)
  - Gastric perforation [Unknown]
  - Abdominal pain upper [Unknown]
  - Gastric ulcer [Unknown]
  - Drug intolerance [Unknown]
  - Abdominal discomfort [Unknown]
  - Epigastric discomfort [Unknown]
  - Gastric ulcer [Unknown]
